FAERS Safety Report 5718817-X (Version None)
Quarter: 2008Q2

REPORT INFORMATION
  Report Type: 
  Country: None (occurrence: None)
  Receive Date: 20080423
  Receipt Date: 20080414
  Transmission Date: 20081010
  Serious: Yes (Hospitalization)
  Sender: FDA-Public Use
  Company Number: GXKR2008GB03603

PATIENT
  Age: 67 Year
  Sex: Male

DRUGS (3)
  1. TRAMADOL HCL [Suspect]
     Dosage: QID, AURICULAR
     Route: 001
     Dates: start: 20080327, end: 20080403
  2. ZOPICLONE(ZOPICLONE) [Suspect]
     Dosage: 7.5 MG, QD
     Dates: start: 20080127, end: 20080403
  3. ACETAMINOPHEN [Concomitant]

REACTIONS (1)
  - PSYCHOTIC DISORDER [None]
